FAERS Safety Report 6358700-2 (Version None)
Quarter: 2009Q3

REPORT INFORMATION
  Report Type: 
  Country: None (occurrence: None)
  Receive Date: 20090916
  Receipt Date: 20090619
  Transmission Date: 20100115
  Serious: No
  Sender: FDA-Public Use
  Company Number: US-ABBOTT-09P-163-0581173-00

PATIENT
  Age: 55 Year
  Sex: Female
  Weight: 52.21 kg

DRUGS (5)
  1. TRILIPIX [Suspect]
     Indication: BLOOD CHOLESTEROL INCREASED
     Dates: start: 20090401, end: 20090617
  2. ENALAPRIL MALEATE [Concomitant]
     Indication: HYPERTENSION
  3. HYDROCHLORATHIAZIDE [Concomitant]
     Indication: HYPERTENSION
  4. AMLODIPINE [Concomitant]
     Indication: HYPERTENSION
  5. LEVOTHYROXINE SODIUM [Concomitant]
     Indication: HYPOTHYROIDISM

REACTIONS (2)
  - BLOOD CHOLESTEROL INCREASED [None]
  - LIVER FUNCTION TEST ABNORMAL [None]
